FAERS Safety Report 6646174-3 (Version None)
Quarter: 2010Q1

REPORT INFORMATION
  Report Type: 
  Country: None (occurrence: None)
  Receive Date: 20100309
  Receipt Date: 20091202
  Transmission Date: 20100710
  Serious: Yes (Other)
  Sender: FDA-Public Use
  Company Number: 2009SP039448

PATIENT
  Age: 42 Year
  Sex: Male

DRUGS (2)
  1. SAPHRIS [Suspect]
     Indication: DRUG USE FOR UNKNOWN INDICATION
     Dosage: 5 MG;ONCE;SL
     Route: 060
  2. LITHIUM (CON.) [Concomitant]

REACTIONS (3)
  - HYPERSOMNIA [None]
  - HYPOMANIA [None]
  - PSYCHOTIC DISORDER [None]
